FAERS Safety Report 5148573-8 (Version None)
Quarter: 2006Q4

REPORT INFORMATION
  Report Type: 
  Country: None (occurrence: None)
  Receive Date: 20061106
  Receipt Date: 20061023
  Transmission Date: 20070319
  Serious: Yes (Other)
  Sender: FDA-Public Use
  Company Number: 2006002029

PATIENT
  Age: 69 Year
  Sex: Female

DRUGS (4)
  1. TARCEVA [Suspect]
     Indication: LUNG NEOPLASM MALIGNANT
     Dosage: 150 MG, ORAL
     Route: 048
     Dates: start: 20060927, end: 20061009
  2. NATRILIX (INDAPAMIDE) [Concomitant]
  3. ZOLPIDEM TARTRATE [Concomitant]
  4. CHEMOTHERAPY [Concomitant]

REACTIONS (4)
  - MOUTH ULCERATION [None]
  - SKIN INFECTION [None]
  - SKIN ULCER [None]
  - THERAPY NON-RESPONDER [None]
